FAERS Safety Report 5128952-5 (Version None)
Quarter: 2006Q4

REPORT INFORMATION
  Report Type: 
  Country: None (occurrence: None)
  Receive Date: 20061011
  Receipt Date: 20060928
  Transmission Date: 20070319
  Serious: Yes (Other)
  Sender: FDA-Public Use
  Company Number: 2006US002151

PATIENT
  Age: 72 Year
  Sex: Female

DRUGS (3)
  1. PROTOPIC [Suspect]
     Indication: ECZEMA NUMMULAR
     Dosage: UID/QD, TOPICAL
     Route: 061
  2. HALOBETASOL PROPIONATE [Suspect]
     Indication: ECZEMA NUMMULAR
     Dosage: TOPICAL
     Route: 061
     Dates: start: 20060615
  3. FLUOCINONIDE [Concomitant]

REACTIONS (3)
  - CARCINOMA IN SITU [None]
  - SKIN CANCER [None]
  - SKIN LESION [None]
